FAERS Safety Report 9298979 (Version 1)
Quarter: 2013Q2

REPORT INFORMATION
  Report Type: Spontaneous
  Country: US (occurrence: US)
  Receive Date: 20130520
  Receipt Date: 20130520
  Transmission Date: 20140414
  Serious: No
  Sender: FDA-Public Use
  Company Number: US-SANOFI-AVENTIS-2013SA016329

PATIENT
  Age: 69 Year
  Sex: Male
  Weight: 113.39 kg

DRUGS (5)
  1. APIDRA [Suspect]
     Indication: DIABETES MELLITUS
     Dosage: DOSE:70 UNIT(S)
     Route: 058
     Dates: start: 2013, end: 2013
  2. APIDRA [Suspect]
     Indication: DIABETES MELLITUS
     Dosage: GIVEN THROUGHOUT THE DAY AMOUNT VARIES DEPENDING ON GLUCOSE LEVELS
     Route: 058
     Dates: start: 2013
  3. LANTUS [Suspect]
     Indication: DIABETES MELLITUS
     Dosage: DOSE:70 UNIT(S)
     Route: 058
     Dates: start: 1998
  4. HUMALOG [Concomitant]
     Indication: DIABETES MELLITUS
     Dosage: DOSE 500
  5. METFORMIN [Concomitant]
     Indication: DIABETES MELLITUS

REACTIONS (3)
  - Wrong drug administered [Unknown]
  - Hunger [Unknown]
  - Appetite disorder [Unknown]
